FAERS Safety Report 5251576-6 (Version None)
Quarter: 2007Q1

REPORT INFORMATION
  Report Type: 
  Country: None (occurrence: None)
  Receive Date: 20070228
  Receipt Date: 20061010
  Transmission Date: 20070707
  Serious: Yes (Other)
  Sender: FDA-Public Use
  Company Number: US-GLAXOSMITHKLINE-A0620705A

PATIENT
  Age: 60 Year
  Sex: Female

DRUGS (8)
  1. LAMICTAL [Suspect]
     Indication: BIPOLAR DISORDER
     Route: 048
     Dates: start: 20060727, end: 20060913
  2. SEROQUEL [Concomitant]
     Dosage: 25MG PER DAY
     Route: 048
     Dates: start: 20060810
  3. WELLBUTRIN XL [Concomitant]
     Dosage: 150MG PER DAY
     Route: 048
     Dates: start: 20060711
  4. PINDOLOL [Concomitant]
  5. DIOVAN [Concomitant]
  6. PREMARIN [Concomitant]
  7. CENTRUM SILVER [Concomitant]
  8. MOBIC [Concomitant]

REACTIONS (7)
  - ERYTHEMA [None]
  - EYE SWELLING [None]
  - HYPERSENSITIVITY [None]
  - PHARYNGEAL OEDEMA [None]
  - RASH [None]
  - STEVENS-JOHNSON SYNDROME [None]
  - TONGUE DISORDER [None]
